FAERS Safety Report 9767212 (Version 1)
Quarter: 2013Q4

REPORT INFORMATION
  Report Type: Spontaneous
  Country: US (occurrence: US)
  Receive Date: 20131217
  Receipt Date: 20131217
  Transmission Date: 20140711
  Serious: No
  Sender: FDA-Public Use
  Company Number: US-GLAXOSMITHKLINE-A1043694A

PATIENT
  Age: 81 Year
  Sex: Male

DRUGS (19)
  1. VOTRIENT [Suspect]
     Indication: RENAL MASS
     Dosage: 1TAB FOUR TIMES PER DAY
     Route: 048
     Dates: start: 201210
  2. ONDANSETRON [Concomitant]
  3. ACIDOPHILUS [Concomitant]
  4. DILTIAZEM [Concomitant]
  5. BABY ASPIRIN [Concomitant]
  6. LISINOPRIL [Concomitant]
  7. TERAZOSIN [Concomitant]
  8. IMODIUM [Concomitant]
  9. ACETAMINOPHEN [Concomitant]
  10. B COMPLEX [Concomitant]
  11. CENTRUM SILVER [Concomitant]
  12. VITAMIN B12 [Concomitant]
  13. FOLIC ACID [Concomitant]
  14. IRON TABLETS [Concomitant]
  15. MAGNESIUM [Concomitant]
  16. VITAMIN A [Concomitant]
  17. CALCIUM [Concomitant]
  18. VITAMIN D [Concomitant]
  19. MEGACE [Concomitant]

REACTIONS (3)
  - Decreased appetite [Recovering/Resolving]
  - Weight decreased [Unknown]
  - Diarrhoea [Unknown]
